FAERS Safety Report 13313412 (Version 1)
Quarter: 2017Q1

REPORT INFORMATION
  Report Type: Spontaneous
  Country: DE (occurrence: DE)
  Receive Date: 20170309
  Receipt Date: 20170309
  Transmission Date: 20170428
  Serious: Yes (Hospitalization)
  Sender: FDA-Public Use
  Company Number: DE-FRESENIUS KABI-FK201701947

PATIENT
  Age: 41 Year
  Sex: Female
  Weight: 68 kg

DRUGS (2)
  1. LEVOFLOXACIN (MANUFACTURER UNKNOWN) [Suspect]
     Active Substance: LEVOFLOXACIN
     Indication: RESPIRATORY TRACT INFECTION BACTERIAL
     Route: 048
     Dates: start: 20130206
  2. L-THYROXIN [Concomitant]
     Active Substance: LEVOTHYROXINE SODIUM
     Indication: HYPOTHYROIDISM

REACTIONS (20)
  - Petechiae [Recovered/Resolved]
  - Muscular weakness [Recovered/Resolved]
  - Dyspnoea [Recovered/Resolved]
  - Dizziness [Recovered/Resolved]
  - Suicidal behaviour [Recovered/Resolved]
  - Weight decreased [Recovered/Resolved]
  - Panic attack [Recovered/Resolved]
  - Muscle atrophy [Recovered/Resolved]
  - Arrhythmia [Recovered/Resolved]
  - Aphasia [Recovered/Resolved]
  - Chest discomfort [Recovered/Resolved]
  - Sensory disturbance [Recovered/Resolved]
  - Depression [Recovered/Resolved]
  - Dysphagia [Recovered/Resolved]
  - Myalgia [Recovered/Resolved]
  - Asthenia [Recovered/Resolved]
  - Brachial pulse increased [Recovered/Resolved]
  - Tendon disorder [Recovered/Resolved]
  - Blood glucose decreased [Recovered/Resolved]
  - Blood pressure fluctuation [Recovered/Resolved]

NARRATIVE: CASE EVENT DATE: 201302
